FAERS Safety Report 12981468 (Version 1)
Quarter: 2016Q4

REPORT INFORMATION
  Report Type: Spontaneous
  Country: US (occurrence: US)
  Receive Date: 20161129
  Receipt Date: 20161129
  Transmission Date: 20170207
  Serious: Yes (Hospitalization)
  Sender: FDA-Public Use
  Company Number: US-ASTRAZENECA-2016SF24627

PATIENT
  Sex: Female
  Weight: 55.8 kg

DRUGS (4)
  1. ATORVASTATIN [Concomitant]
     Active Substance: ATORVASTATIN
  2. NEXIUM [Suspect]
     Active Substance: ESOMEPRAZOLE MAGNESIUM
     Indication: BARRETT^S OESOPHAGUS
     Dosage: DAILY
     Route: 048
  3. OMEPRAZOLE. [Suspect]
     Active Substance: OMEPRAZOLE
     Indication: BARRETT^S OESOPHAGUS
     Route: 048
  4. ENALAPRIL-HCTZ [Concomitant]

REACTIONS (13)
  - Nausea [Unknown]
  - Pain [Unknown]
  - Blood cholesterol increased [Unknown]
  - Product use issue [Unknown]
  - Loss of consciousness [Unknown]
  - Hypertension [Unknown]
  - Dizziness [Unknown]
  - Muscular weakness [Unknown]
  - Palpitations [Unknown]
  - Headache [Unknown]
  - Off label use [Unknown]
  - Osteoporosis [Unknown]
  - Tremor [Unknown]
